FAERS Safety Report 5190363-4 (Version None)
Quarter: 2006Q4

REPORT INFORMATION
  Report Type: 
  Country: None (occurrence: None)
  Receive Date: 20061222
  Receipt Date: 20061128
  Transmission Date: 20070319
  Serious: Yes (Hospitalization)
  Sender: FDA-Public Use
  Company Number: PHEH2006US14821

PATIENT
  Age: 62 Year
  Sex: Female
  Weight: 53.968 kg

DRUGS (9)
  1. ZELNORM [Suspect]
     Indication: IRRITABLE BOWEL SYNDROME
     Dosage: 6 MG, BID
     Route: 048
     Dates: start: 20060927, end: 20061025
  2. PROTONIX [Concomitant]
  3. PREDNISONE TAB [Concomitant]
  4. ALBUTEROL [Concomitant]
  5. SPIRIVA [Concomitant]
  6. PULMICORT [Concomitant]
  7. FLEXERIL [Concomitant]
  8. XANAX [Concomitant]
  9. VITAMINS [Concomitant]

REACTIONS (18)
  - ABDOMINAL DISTENSION [None]
  - ABDOMINAL PAIN [None]
  - ABDOMINAL TENDERNESS [None]
  - BLOOD POTASSIUM DECREASED [None]
  - CLOSTRIDIUM DIFFICILE COLITIS [None]
  - CLOSTRIDIUM DIFFICILE TOXIN TEST POSITIVE [None]
  - COLITIS ISCHAEMIC [None]
  - DIARRHOEA [None]
  - DIVERTICULUM [None]
  - ERYTHEMA [None]
  - HAEMATOCHEZIA [None]
  - HAEMORRHOIDS [None]
  - NAUSEA [None]
  - PROTEIN TOTAL DECREASED [None]
  - PYREXIA [None]
  - RECTAL HAEMORRHAGE [None]
  - STOOL ANALYSIS ABNORMAL [None]
  - VOMITING [None]
